FAERS Safety Report 6318005-2 (Version None)
Quarter: 2009Q3

REPORT INFORMATION
  Report Type: 
  Country: None (occurrence: None)
  Receive Date: 20090821
  Receipt Date: 20090811
  Transmission Date: 20100115
  Serious: Yes (Hospitalization)
  Sender: FDA-Public Use
  Company Number: US-PFIZER INC-2009252771

PATIENT
  Age: 59 Year
  Sex: Male

DRUGS (10)
  1. BLINDED *NO SUBJECT DRUG [Suspect]
  2. BLINDED *PLACEBO [Suspect]
  3. BLINDED EPLERENONE [Suspect]
  4. ACETYLSALICYLIC ACID [Concomitant]
  5. PRAVASTATIN [Concomitant]
  6. LASIX [Concomitant]
  7. LISINOPRIL [Concomitant]
  8. COREG [Concomitant]
  9. K-DUR [Concomitant]
  10. XANAX [Concomitant]

REACTIONS (2)
  - HYPERKALAEMIA [None]
  - VENTRICULAR TACHYCARDIA [None]
